FAERS Safety Report 9220477 (Version 1)
Quarter: 2013Q1

REPORT INFORMATION
  Report Type: Spontaneous
  Country: US (occurrence: None)
  Receive Date: 20120830
  Receipt Date: 20120830
  Transmission Date: 20140127
  Serious: Yes (Other)
  Sender: FDA-Public Use
  Company Number: PHEH2012US009697

PATIENT
  Sex: 0

DRUGS (1)
  1. SANDOSTATIN LAR DEPOT (OCTREOTIDE WITH POLY (D L-LACTIDE-CO-GLYCOLIDE)) UNKNOWN [Suspect]
     Indication: ACROMEGALY
     Route: 030

REACTIONS (3)
  - Blood growth hormone increased [None]
  - Insulin-like growth factor increased [None]
  - Drug ineffective [None]
